FAERS Safety Report 14289571 (Version 6)
Quarter: 2019Q1

REPORT INFORMATION
  Report Type: Spontaneous
  Country: US (occurrence: US)
  Receive Date: 20171214
  Receipt Date: 20190102
  Transmission Date: 20190417
  Serious: No
  Sender: FDA-Public Use
  Company Number: US-ACTELION-A-NJ2017-163968

PATIENT
  Age: 70 Year
  Sex: Female

DRUGS (13)
  1. FENOFIBRATE. [Concomitant]
     Active Substance: FENOFIBRATE
     Dosage: 160 MG, QD
  2. OPSUMIT [Suspect]
     Active Substance: MACITENTAN
     Indication: PULMONARY ARTERIAL HYPERTENSION
     Dosage: 10 MG, QD
     Route: 048
     Dates: start: 20171116
  3. ROSUVASTIN [Concomitant]
     Active Substance: ROSUVASTATIN
     Dosage: 20 MG, QD
  4. METOPROLOL. [Concomitant]
     Active Substance: METOPROLOL
     Dosage: UNK
  5. LOSARTAN POTASSIUM. [Concomitant]
     Active Substance: LOSARTAN POTASSIUM
     Dosage: 25 MG, QD
  6. REGLAN [Suspect]
     Active Substance: METOCLOPRAMIDE HYDROCHLORIDE
     Indication: PRODUCT USED FOR UNKNOWN INDICATION
     Route: 065
  7. GLIMEPIRIDE. [Concomitant]
     Active Substance: GLIMEPIRIDE
     Dosage: 2 MG, BID
  8. LEVOTHYROXINE. [Concomitant]
     Active Substance: LEVOTHYROXINE
     Dosage: 150 MCG, QAM
  9. VICTOZA [Concomitant]
     Active Substance: LIRAGLUTIDE
     Dosage: 1.12 MG, QAM
  10. CLONAZEPAM. [Concomitant]
     Active Substance: CLONAZEPAM
     Dosage: 1 MG, QPM
  11. ROPINIROLE. [Concomitant]
     Active Substance: ROPINIROLE
     Dosage: 1.5 MG, QPM
  12. ADEMPAS [Suspect]
     Active Substance: RIOCIGUAT
     Indication: PULMONARY ARTERIAL HYPERTENSION
     Dosage: 1.5 MG, TID
     Route: 065
     Dates: start: 20171201, end: 201811
  13. BUPROPION. [Concomitant]
     Active Substance: BUPROPION
     Dosage: 150 MG, QD

REACTIONS (22)
  - Dyspnoea [Not Recovered/Not Resolved]
  - Palpitations [Not Recovered/Not Resolved]
  - Gastrooesophageal reflux disease [Unknown]
  - Crying [Unknown]
  - Diarrhoea [Unknown]
  - Weight increased [Unknown]
  - Therapy non-responder [Not Recovered/Not Resolved]
  - Depression [Unknown]
  - Nasal congestion [Unknown]
  - Abdominal pain [Unknown]
  - Nausea [Not Recovered/Not Resolved]
  - Diaphragmatic paralysis [Unknown]
  - Vomiting [Unknown]
  - Fatigue [Unknown]
  - Peripheral swelling [Unknown]
  - Abdominal distension [Not Recovered/Not Resolved]
  - Abdominal discomfort [Unknown]
  - Diabetic gastroparesis [Not Recovered/Not Resolved]
  - Malaise [Unknown]
  - Fluid retention [Unknown]
  - Eructation [Not Recovered/Not Resolved]
  - Condition aggravated [Not Recovered/Not Resolved]

NARRATIVE: CASE EVENT DATE: 20180318
